FAERS Safety Report 13186639 (Version 2)
Quarter: 2017Q1

REPORT INFORMATION
  Report Type: Spontaneous
  Country: US (occurrence: US)
  Receive Date: 20170205
  Receipt Date: 20170308
  Transmission Date: 20170428
  Serious: No
  Sender: FDA-Public Use
  Company Number: US-TAIHO ONCOLOGY INC-EU-2017-00156

PATIENT
  Sex: Male

DRUGS (4)
  1. LONSURF [Suspect]
     Active Substance: TIPIRACIL HYDROCHLORIDE\TRIFLURIDINE
     Indication: COLON CANCER
     Route: 048
     Dates: start: 20161230
  2. METFORMIN HYDROCHLORIDE/GLIBENCLAMIDE [Concomitant]
     Dosage: NI
  3. LISINOPRIL. [Concomitant]
     Active Substance: LISINOPRIL
     Dosage: NI
  4. METFORMIN [Concomitant]
     Active Substance: METFORMIN HYDROCHLORIDE
     Dosage: NI

REACTIONS (3)
  - Decreased appetite [Unknown]
  - Dysgeusia [Unknown]
  - Nausea [Unknown]
